FAERS Safety Report 6130361-7 (Version None)
Quarter: 2009Q1

REPORT INFORMATION
  Report Type: 
  Country: None (occurrence: None)
  Receive Date: 20090324
  Receipt Date: 20090312
  Transmission Date: 20090719
  Serious: Yes (Other)
  Sender: FDA-Public Use
  Company Number: GB-ELI_LILLY_AND_COMPANY-GB200903003587

PATIENT
  Age: 70 Year
  Sex: Male

DRUGS (2)
  1. ZYPREXA [Suspect]
     Indication: BIPOLAR DISORDER
     Dosage: 20 MG, UNK
  2. ZYPREXA [Suspect]
     Dosage: 7.5 MG, UNK

REACTIONS (2)
  - ASTHENIA [None]
  - BLOOD PRESSURE INCREASED [None]
